FAERS Safety Report 7462068-8 (Version None)
Quarter: 2011Q2

REPORT INFORMATION
  Report Type: 
  Country: None (occurrence: None)
  Receive Date: 20110506
  Receipt Date: 20110408
  Transmission Date: 20111010
  Serious: Yes (Other)
  Sender: FDA-Public Use
  Company Number: US-BAYER-200943660NA

PATIENT
  Age: 29 Year
  Sex: Female
  Weight: 90.703 kg

DRUGS (1)
  1. YASMIN [Suspect]
     Indication: PRODUCT USED FOR UNKNOWN INDICATION
     Dates: start: 20081201, end: 20090315

REACTIONS (2)
  - CHOLECYSTITIS [None]
  - ABDOMINAL PAIN [None]
